FAERS Safety Report 18192885 (Version 1)
Quarter: 2020Q3

REPORT INFORMATION
  Report Type: Spontaneous
  Country: US (occurrence: US)
  Receive Date: 20200825
  Receipt Date: 20200825
  Transmission Date: 20201103
  Serious: No
  Sender: FDA-Public Use
  Company Number: US-ACCORD-191294

PATIENT
  Sex: Female
  Weight: 65.32 kg

DRUGS (2)
  1. BUPROPION ACCORD [Suspect]
     Active Substance: BUPROPION HYDROCHLORIDE
     Indication: DEPRESSION
     Dosage: STRENGTH: 150 MG, DISPENSED IN A PHARMACY BOTTLE
     Route: 048
     Dates: start: 20200622
  2. SYNTHROID [Concomitant]
     Active Substance: LEVOTHYROXINE SODIUM
     Dosage: 88 MCG /ONCE A DAY

REACTIONS (3)
  - Appetite disorder [Not Recovered/Not Resolved]
  - Irritability [Not Recovered/Not Resolved]
  - Sleep disorder [Not Recovered/Not Resolved]
